FAERS Safety Report 6774089-9 (Version None)
Quarter: 2010Q2

REPORT INFORMATION
  Report Type: 
  Country: None (occurrence: None)
  Receive Date: 20100616
  Receipt Date: 20100616
  Transmission Date: 20101027
  Serious: Yes (Life-Threatening)
  Sender: FDA-Public Use
  Company Number: None

PATIENT
  Age: 63 Year
  Sex: Male
  Weight: 110 kg

DRUGS (29)
  1. ARIXTRA [Suspect]
  2. CLEOCIN [Concomitant]
  3. VERSED [Concomitant]
  4. MORPHINE [Concomitant]
  5. TORADOL [Concomitant]
  6. MARCAINE [Concomitant]
  7. NAROPIN [Concomitant]
  8. EXFORGE [Concomitant]
  9. FLOMAX [Concomitant]
  10. HYDROIURIL [Concomitant]
  11. LORTAB [Concomitant]
  12. MOM [Concomitant]
  13. MORHINE PCA [Concomitant]
  14. TYLENOL [Concomitant]
  15. ZOFRAN [Concomitant]
  16. RESTORIL [Concomitant]
  17. FENTANYL [Concomitant]
  18. MIDAZOLAM HCL [Concomitant]
  19. DEXAMETHASONE [Concomitant]
  20. PROPOFOL [Concomitant]
  21. EPHEDRINE [Concomitant]
  22. LIDOCAINE [Concomitant]
  23. FAMOTIDINE [Concomitant]
  24. METOCLOPRAMIDE [Concomitant]
  25. ONDANSETRON [Concomitant]
  26. SEVOFLURANE [Concomitant]
  27. CLEOCIN + DEXTROSE [Concomitant]
  28. FLOMAX [Concomitant]
  29. SENEOT [Concomitant]

REACTIONS (3)
  - HAEMATOCRIT DECREASED [None]
  - HAEMOGLOBIN DECREASED [None]
  - POST PROCEDURAL HAEMATOMA [None]
